FAERS Safety Report 5829078-5 (Version None)
Quarter: 2008Q3

REPORT INFORMATION
  Report Type: 
  Country: None (occurrence: None)
  Receive Date: 20080731
  Receipt Date: 20080722
  Transmission Date: 20090109
  Serious: Yes (Other)
  Sender: FDA-Public Use
  Company Number: GB-ASTRAZENECA-2008GB01393

PATIENT
  Age: 73 Year
  Weight: 57.4 kg

DRUGS (1)
  1. OMEPRAZOLE [Suspect]
     Indication: BARRETT'S OESOPHAGUS
     Dosage: 20 MG
     Route: 048
     Dates: end: 20071201

REACTIONS (2)
  - NEPHRITIS INTERSTITIAL [None]
  - RENAL IMPAIRMENT [None]
